FAERS Safety Report 13362974 (Version 1)
Quarter: 2017Q1

REPORT INFORMATION
  Report Type: Report from Study
  Country: US (occurrence: US)
  Receive Date: 20170323
  Receipt Date: 20170323
  Transmission Date: 20170429
  Serious: Yes (Other)
  Sender: FDA-Public Use
  Company Number: US-IPSEN BIOPHARMACEUTICALS, INC.-2017-02231

PATIENT
  Sex: Female

DRUGS (1)
  1. SOMATULINE [Suspect]
     Active Substance: LANREOTIDE ACETATE
     Indication: PRODUCT USED FOR UNKNOWN INDICATION
     Dosage: NOT REPORTED
     Route: 065
     Dates: start: 2010

REACTIONS (2)
  - Malaise [Not Recovered/Not Resolved]
  - Bile duct obstruction [Unknown]

NARRATIVE: CASE EVENT DATE: 201702
